FAERS Safety Report 21032727 (Version 1)
Quarter: 2022Q3

REPORT INFORMATION
  Report Type: Spontaneous
  Country: CN (occurrence: CN)
  Receive Date: 20220701
  Receipt Date: 20220701
  Transmission Date: 20221027
  Serious: Yes (Other)
  Sender: FDA-Public Use
  Company Number: CN-ASTELLAS-2022US023289

PATIENT
  Age: 82 Year
  Sex: Female
  Weight: 40 kg

DRUGS (3)
  1. MIRABEGRON [Suspect]
     Active Substance: MIRABEGRON
     Indication: Hypertonic bladder
     Route: 048
     Dates: start: 20220620, end: 20220622
  2. SULPERAZONE [Suspect]
     Active Substance: CEFOPERAZONE SODIUM\SULBACTAM SODIUM
     Indication: Thermal burn
     Route: 041
     Dates: start: 20220617, end: 20220623
  3. SULPERAZONE [Suspect]
     Active Substance: CEFOPERAZONE SODIUM\SULBACTAM SODIUM
     Indication: Infection

REACTIONS (3)
  - Acute generalised exanthematous pustulosis [Recovering/Resolving]
  - Drug eruption [Recovering/Resolving]
  - Impetigo [Recovering/Resolving]

NARRATIVE: CASE EVENT DATE: 20220620
